FAERS Safety Report 20311151 (Version 2)
Quarter: 2022Q1

REPORT INFORMATION
  Report Type: Report from Study
  Country: US (occurrence: US)
  Receive Date: 20220107
  Receipt Date: 20220120
  Transmission Date: 20220423
  Serious: Yes (Hospitalization)
  Sender: FDA-Public Use
  Company Number: US-PFIZER INC-202101883447

PATIENT
  Age: 73 Year
  Sex: Male
  Weight: 94.785 kg

DRUGS (7)
  1. ENCORAFENIB [Suspect]
     Active Substance: ENCORAFENIB
     Indication: Metastatic malignant melanoma
     Dosage: 300 MG, ONCE DAILY CONTINUOUS SINCE DAY 1
     Route: 048
     Dates: start: 20211101, end: 20211228
  2. BINIMETINIB [Suspect]
     Active Substance: BINIMETINIB
     Indication: Metastatic malignant melanoma
     Dosage: 30 MG, TWICE DAILY CONTINUOUS SINCE DAY 1
     Route: 048
     Dates: start: 20211101, end: 20211228
  3. LOSARTAN [Suspect]
     Active Substance: LOSARTAN
     Indication: Prophylaxis
     Dosage: 25 MG, DAY -7, DAY 1 AND DAY 14
     Route: 048
     Dates: start: 20211025, end: 20211115
  4. MIDAZOLAM [Suspect]
     Active Substance: MIDAZOLAM
     Indication: Prophylaxis
     Dosage: 2 MG/ML, DAY -7, DAY 1 AND DAY 14
     Route: 048
     Dates: start: 20211025, end: 20211115
  5. OMEPRAZOLE [Suspect]
     Active Substance: OMEPRAZOLE
     Indication: Prophylaxis
     Dosage: 20 MG, DAY -7, DAY 1 AND DAY 14
     Route: 048
     Dates: start: 20211025, end: 20211115
  6. DEXTROMETHORPHAN [Suspect]
     Active Substance: DEXTROMETHORPHAN
     Indication: Prophylaxis
     Dosage: 30 MG, DAY -7, DAY 1 AND DAY 14
     Route: 048
     Dates: start: 20211025, end: 20211115
  7. CAFFEINE [Suspect]
     Active Substance: CAFFEINE
     Indication: Prophylaxis
     Dosage: 100MG/5 ML, DAY -7, DAY 1 AND DAY 14
     Route: 048
     Dates: start: 20211025, end: 20211115

REACTIONS (2)
  - Abdominal distension [Recovering/Resolving]
  - Arthralgia [Recovering/Resolving]

NARRATIVE: CASE EVENT DATE: 20211228
